FAERS Safety Report 25957807 (Version 1)
Quarter: 2025Q4

REPORT INFORMATION
  Report Type: Report from Study
  Country: US (occurrence: US)
  Receive Date: 20251024
  Receipt Date: 20251024
  Transmission Date: 20260117
  Serious: Yes (Other)
  Sender: ABBVIE
  Company Number: US-ABBVIE-6511237

PATIENT
  Sex: Female

DRUGS (1)
  1. HUMIRA [Suspect]
     Active Substance: ADALIMUMAB
     Indication: Product used for unknown indication
     Dosage: CITRATE-FREE
     Route: 058
     Dates: start: 2010

REACTIONS (3)
  - Retinal vascular occlusion [Unknown]
  - Glaucoma [Unknown]
  - Hypertension [Unknown]
